FAERS Safety Report 8348883-7 (Version None)
Quarter: 2012Q2

REPORT INFORMATION
  Report Type: 
  Country: None (occurrence: None)
  Receive Date: 20120508
  Receipt Date: 20120424
  Transmission Date: 20120825
  Serious: Yes (Hospitalization)
  Sender: FDA-Public Use
  Company Number: JPI-P-021108

PATIENT
  Age: 68 Year
  Sex: Female

DRUGS (1)
  1. XYREM [Suspect]
     Indication: NARCOLEPSY
     Dosage: 4.5;9 GM (2.25;4.5 GM, 2 IN 1 D), ORAL
     Route: 048
     Dates: start: 20111103

REACTIONS (6)
  - ABDOMINAL DISCOMFORT [None]
  - DENTAL IMPLANTATION [None]
  - DRUG WITHDRAWAL SYNDROME [None]
  - HERNIA REPAIR [None]
  - FATIGUE [None]
  - GASTROENTERITIS VIRAL [None]
